FAERS Safety Report 24040634 (Version 3)
Quarter: 2024Q3

REPORT INFORMATION
  Report Type: Spontaneous
  Country: US (occurrence: US)
  Receive Date: 20240702
  Receipt Date: 20240824
  Transmission Date: 20241017
  Serious: Yes (Other)
  Sender: ALEXION PHARMACEUTICALS
  Company Number: US-AstraZeneca-CH-00657943A

PATIENT
  Sex: Male
  Weight: 64.853 kg

DRUGS (1)
  1. STRENSIQ [Suspect]
     Active Substance: ASFOTASE ALFA
     Indication: Product used for unknown indication
     Dosage: 80 MILLIGRAM
     Route: 058
     Dates: start: 201705

REACTIONS (1)
  - Nephrolithiasis [Recovered/Resolved]
